FAERS Safety Report 13871785 (Version 2)
Quarter: 2017Q3

REPORT INFORMATION
  Report Type: Spontaneous
  Country: US (occurrence: US)
  Receive Date: 20170816
  Receipt Date: 20170929
  Transmission Date: 20171127
  Serious: Yes (Hospitalization, Other)
  Sender: FDA-Public Use
  Company Number: US-ASTRAZENECA-2017SE81756

PATIENT
  Sex: Male
  Weight: 86.2 kg

DRUGS (19)
  1. TUDORZA PRESSAIR [Suspect]
     Active Substance: ACLIDINIUM BROMIDE
     Indication: EMPHYSEMA
     Route: 055
  2. DIGOXIN. [Concomitant]
     Active Substance: DIGOXIN
     Indication: CARDIAC DISORDER
     Dosage: 0.125 THREE TIMES A WEEK
  3. PREDNISONE. [Concomitant]
     Active Substance: PREDNISONE
     Indication: LUNG DISORDER
  4. ELIQUIS [Concomitant]
     Active Substance: APIXABAN
     Indication: PROPHYLAXIS
  5. FLECAINIDE [Concomitant]
     Active Substance: FLECAINIDE
     Indication: ATRIAL FIBRILLATION
  6. FINASTERIDE. [Concomitant]
     Active Substance: FINASTERIDE
     Dosage: DAILY
  7. IPRATROPIUM [Concomitant]
     Active Substance: IPRATROPIUM
  8. XOPENEX [Concomitant]
     Active Substance: LEVALBUTEROL HYDROCHLORIDE
  9. TUDORZA PRESSAIR [Suspect]
     Active Substance: ACLIDINIUM BROMIDE
     Indication: CHRONIC OBSTRUCTIVE PULMONARY DISEASE
     Route: 055
  10. ATORVASTATIN [Concomitant]
     Active Substance: ATORVASTATIN
     Indication: BLOOD CHOLESTEROL ABNORMAL
  11. RANITIDINE. [Concomitant]
     Active Substance: RANITIDINE
     Indication: GASTROOESOPHAGEAL REFLUX DISEASE
  12. AMITRIPTYLINE [Concomitant]
     Active Substance: AMITRIPTYLINE
     Indication: DEPRESSION
  13. BROVANA [Concomitant]
     Active Substance: ARFORMOTEROL TARTRATE
  14. METOPROLOL SUCCINATE. [Suspect]
     Active Substance: METOPROLOL SUCCINATE
     Indication: CARDIAC DISORDER
     Route: 048
  15. METOPROLOL SUCCINATE. [Suspect]
     Active Substance: METOPROLOL SUCCINATE
     Indication: CARDIAC DISORDER
     Route: 048
  16. POTASSIUM CHLORIDE. [Concomitant]
     Active Substance: POTASSIUM CHLORIDE
     Indication: BLOOD CHOLESTEROL ABNORMAL
  17. OXYCODONE [Concomitant]
     Active Substance: OXYCODONE
     Indication: ARTHRALGIA
  18. CLARINEX [Concomitant]
     Active Substance: DESLORATADINE
     Indication: MULTIPLE ALLERGIES
  19. FUROSEMIDE. [Concomitant]
     Active Substance: FUROSEMIDE

REACTIONS (8)
  - Chronic obstructive pulmonary disease [Unknown]
  - Lung disorder [Unknown]
  - Muscular weakness [Unknown]
  - Emphysema [Unknown]
  - Atrial fibrillation [Unknown]
  - Device malfunction [Unknown]
  - Fall [Unknown]
  - Pneumonia [Recovered/Resolved]
